FAERS Safety Report 4928796-0 (Version None)
Quarter: 2006Q1

REPORT INFORMATION
  Report Type: 
  Country: None (occurrence: None)
  Receive Date: 20060227
  Receipt Date: 20060227
  Transmission Date: 20060701
  Serious: Yes (Life-Threatening)
  Sender: FDA-Public Use
  Company Number: None

PATIENT
  Age: 43 Year
  Sex: Female
  Weight: 83.4619 kg

DRUGS (2)
  1. CARDIZEM CD [Suspect]
     Indication: HYPERTENSION
     Dosage: 180 MG DAILY
     Dates: start: 19950224, end: 19950628
  2. GASTROPARESIS [Concomitant]

REACTIONS (3)
  - LOSS OF CONSCIOUSNESS [None]
  - PALPITATIONS [None]
  - SYNCOPE [None]
